FAERS Safety Report 5429778-5 (Version None)
Quarter: 2007Q3

REPORT INFORMATION
  Report Type: 
  Country: None (occurrence: None)
  Receive Date: 20070827
  Receipt Date: 20070809
  Transmission Date: 20080115
  Serious: Yes (Congenital Anomaly)
  Sender: FDA-Public Use
  Company Number: 8025977

PATIENT
  Weight: 2.79 kg

DRUGS (2)
  1. KEPPRA [Suspect]
     Dosage: TRP
     Route: 064
  2. TOPAMAX [Suspect]
     Dosage: TRP
     Route: 064

REACTIONS (4)
  - CONGENITAL ANOMALY [None]
  - DRUG EXPOSURE DURING PREGNANCY [None]
  - PREGNANCY [None]
  - TALIPES [None]
